FAERS Safety Report 8843456 (Version 2)
Quarter: 2015Q2

REPORT INFORMATION
  Report Type: Report from Study
  Country: US (occurrence: US)
  Receive Date: 20121016
  Receipt Date: 20150625
  Transmission Date: 20150821
  Serious: Yes (Other)
  Sender: FDA-Public Use
  Company Number: US-ROCHE-1141580

PATIENT
  Sex: Female

DRUGS (4)
  1. LEVOTHYROXINE [Concomitant]
     Active Substance: LEVOTHYROXINE
     Route: 065
  2. NUTROPIN AQ [Suspect]
     Active Substance: SOMATROPIN
     Indication: GONADAL DYSGENESIS
     Dosage: 6 INJECTIONS PER WEEK
     Route: 058
     Dates: start: 19980110
  3. NUTROPIN AQ [Suspect]
     Active Substance: SOMATROPIN
     Indication: TURNER^S SYNDROME
     Route: 058
     Dates: start: 19980112, end: 19980415
  4. LISINOPRIL. [Concomitant]
     Active Substance: LISINOPRIL
     Route: 065

REACTIONS (8)
  - Sleep apnoea syndrome [Unknown]
  - Device related infection [Unknown]
  - Dizziness [Unknown]
  - Headache [Unknown]
  - Tonsillar hypertrophy [Unknown]
  - Right ventricular failure [Unknown]
  - Keloid scar [Unknown]
  - Osteopenia [Unknown]
